FAERS Safety Report 20583940 (Version 8)
Quarter: 2022Q2

REPORT INFORMATION
  Report Type: Report from Study
  Country: CO (occurrence: CO)
  Receive Date: 20220311
  Receipt Date: 20220502
  Transmission Date: 20220720
  Serious: Yes (Death, Hospitalization, Other)
  Sender: FDA-Public Use
  Company Number: CO-ABBVIE-22K-036-4311363-00

PATIENT
  Sex: Female
  Weight: 65 kg

DRUGS (1)
  1. VENETOCLAX [Suspect]
     Active Substance: VENETOCLAX
     Indication: Acute myeloid leukaemia
     Route: 048
     Dates: start: 20220226, end: 20220325

REACTIONS (14)
  - Death [Fatal]
  - General physical health deterioration [Not Recovered/Not Resolved]
  - Full blood count abnormal [Unknown]
  - COVID-19 [Not Recovered/Not Resolved]
  - Pneumonia [Recovering/Resolving]
  - Decreased appetite [Not Recovered/Not Resolved]
  - Malaise [Recovering/Resolving]
  - Oxygen saturation abnormal [Recovering/Resolving]
  - Stress [Not Recovered/Not Resolved]
  - Muscular weakness [Not Recovered/Not Resolved]
  - Dysstasia [Not Recovered/Not Resolved]
  - Anaemia [Recovering/Resolving]
  - Face oedema [Not Recovered/Not Resolved]
  - Oedema peripheral [Not Recovered/Not Resolved]

NARRATIVE: CASE EVENT DATE: 20220101
